FAERS Safety Report 8216901-2 (Version None)
Quarter: 2012Q1

REPORT INFORMATION
  Report Type: 
  Country: None (occurrence: None)
  Receive Date: 20120317
  Receipt Date: 20120308
  Transmission Date: 20120608
  Serious: Yes (Hospitalization, Other)
  Sender: FDA-Public Use
  Company Number: US-VERTEX PHARMACEUTICALS INC.-AE-2012-002943

PATIENT
  Sex: Male
  Weight: 98.518 kg

DRUGS (12)
  1. PEGASYS [Concomitant]
     Route: 058
     Dates: start: 20120105, end: 20120121
  2. RIBASPHERE [Concomitant]
     Indication: HEPATITIS C
     Route: 048
     Dates: start: 20110908, end: 20110922
  3. RIBASPHERE [Concomitant]
     Route: 048
     Dates: start: 20120105, end: 20120121
  4. VITAMIN D [Concomitant]
  5. SPIRIVA [Concomitant]
  6. PEGASYS [Concomitant]
     Indication: HEPATITIS C
     Route: 058
     Dates: start: 20110908, end: 20110922
  7. ADVAIR DISKUS 100/50 [Concomitant]
  8. INCIVEK [Suspect]
     Indication: HEPATITIS C
     Route: 048
     Dates: start: 20110908, end: 20110922
  9. VENTOLIN [Concomitant]
  10. INCIVEK [Suspect]
     Route: 048
     Dates: start: 20120105, end: 20120121
  11. ACYCLOVIR [Concomitant]
  12. NIFEDIPINE [Concomitant]

REACTIONS (12)
  - NOCTURIA [None]
  - SMALL INTESTINAL OBSTRUCTION [None]
  - CHOLECYSTITIS [None]
  - ENTERITIS [None]
  - APHTHOUS STOMATITIS [None]
  - DYSGEUSIA [None]
  - CONJUNCTIVITIS ALLERGIC [None]
  - NAUSEA [None]
  - ILEUS [None]
  - CONSTIPATION [None]
  - GLOSSODYNIA [None]
  - CHILLS [None]
